FAERS Safety Report 5156977-2 (Version None)
Quarter: 2006Q4

REPORT INFORMATION
  Report Type: 
  Country: None (occurrence: None)
  Receive Date: 20061125
  Receipt Date: 20061009
  Transmission Date: 20070319
  Serious: Yes (Other)
  Sender: FDA-Public Use
  Company Number: PHEH2006US12774

PATIENT
  Age: 33 Year
  Sex: Female
  Weight: 65.306 kg

DRUGS (1)
  1. EXJADE [Suspect]
     Indication: IRON OVERLOAD
     Dosage: 1250 MG/KG, QD
     Route: 048
     Dates: start: 20060823, end: 20061016

REACTIONS (4)
  - CHILLS [None]
  - DRY EYE [None]
  - EYE LASER SURGERY [None]
  - VISION BLURRED [None]
